FAERS Safety Report 4960871-7 (Version None)
Quarter: 2006Q1

REPORT INFORMATION
  Report Type: 
  Country: None (occurrence: None)
  Receive Date: 20060331
  Receipt Date: 20060331
  Transmission Date: 20060701
  Serious: No
  Sender: FDA-Public Use
  Company Number: None

PATIENT
  Age: 28 Year
  Sex: Female
  Weight: 77.1115 kg

DRUGS (1)
  1. ORTHO EVRA [Suspect]
     Indication: CONTRACEPTION
     Dosage: 1 PATCH WEEKLY
     Route: 062
     Dates: start: 20060101

REACTIONS (5)
  - ALOPECIA [None]
  - FATIGUE [None]
  - HEADACHE [None]
  - MOOD SWINGS [None]
  - NAUSEA [None]
